FAERS Safety Report 24622746 (Version 2)
Quarter: 2024Q4

REPORT INFORMATION
  Report Type: Spontaneous
  Country: US (occurrence: US)
  Receive Date: 20241115
  Receipt Date: 20241126
  Transmission Date: 20250115
  Serious: No
  Sender: ROCHE
  Company Number: US-ROCHE-10000131743

PATIENT
  Sex: Female

DRUGS (1)
  1. VABYSMO [Suspect]
     Active Substance: FARICIMAB-SVOA
     Indication: Product used for unknown indication
     Dosage: 2ND INJECTION 15-SEP-2024
     Route: 065

REACTIONS (4)
  - Retinal vasculitis [Recovering/Resolving]
  - Keratic precipitates [Unknown]
  - Corneal opacity [Unknown]
  - Intraocular pressure increased [Recovering/Resolving]
